FAERS Safety Report 6246526-X (Version None)
Quarter: 2009Q2

REPORT INFORMATION
  Report Type: 
  Country: None (occurrence: None)
  Receive Date: 20090624
  Receipt Date: 20090624
  Transmission Date: 20091009
  Serious: No
  Sender: FDA-Public Use
  Company Number: None

PATIENT
  Age: 32 Year
  Sex: Female
  Weight: 86.1834 kg

DRUGS (5)
  1. LORATADINE [Suspect]
     Indication: MULTIPLE ALLERGIES
     Dosage: 1 PILL ONE TIME PO TOOK ONE TIME
     Route: 048
  2. CETIRIZINE [Suspect]
     Indication: MULTIPLE ALLERGIES
     Dosage: 1 PILL ONE TIME PO TOOK ONE TIME
     Route: 048
  3. CELEXA [Concomitant]
  4. ZOVIA 1/35E-21 [Concomitant]
  5. POTASSIUM SUPPLEMENT [Concomitant]

REACTIONS (1)
  - SOMNOLENCE [None]
